FAERS Safety Report 19770442 (Version 2)
Quarter: 2021Q3

REPORT INFORMATION
  Report Type: Spontaneous
  Country: RU (occurrence: RU)
  Receive Date: 20210831
  Receipt Date: 20210831
  Transmission Date: 20211014
  Serious: Yes (Other)
  Sender: FDA-Public Use
  Company Number: RU-TOPROL-2021000181

PATIENT
  Age: 70 Year
  Sex: Male

DRUGS (5)
  1. BETALOC ZOK [Suspect]
     Active Substance: METOPROLOL SUCCINATE
     Route: 048
  2. CLOPIDOGREL [Concomitant]
     Active Substance: CLOPIDOGREL BISULFATE
     Route: 065
  3. ANTICOAGULANT [Concomitant]
     Active Substance: UNSPECIFIED INGREDIENT
     Route: 065
  4. ASPIRIN. [Concomitant]
     Active Substance: ASPIRIN
     Route: 065
  5. DISAGGREGANTS [Concomitant]
     Route: 065

REACTIONS (1)
  - Myocardial ischaemia [Recovering/Resolving]
